FAERS Safety Report 8702306 (Version 3)
Quarter: 2013Q1

REPORT INFORMATION
  Report Type: Spontaneous
  Country: FR (occurrence: None)
  Receive Date: 20120719
  Receipt Date: 20121211
  Transmission Date: 20140127
  Serious: Yes (Hospitalization)
  Sender: FDA-Public Use
  Company Number: DSA_58518_2012

PATIENT
  Age: 52 Year
  Sex: Female

DRUGS (1)
  1. FLAGYL [Suspect]
     Indication: PRODUCT USED FOR UNKNOWN INDICATION
     Dosage: (500 MG (FREQUENCY UNSPECIFIED) ORAL)
     Route: 048

REACTIONS (3)
  - Coordination abnormal [None]
  - Gait disturbance [None]
  - Depression [None]
